FAERS Safety Report 10395083 (Version 2)
Quarter: 2014Q2

REPORT INFORMATION
  Report Type: Spontaneous
  Country: US (occurrence: None)
  Receive Date: 20130328
  Receipt Date: 20140604
  Transmission Date: 20141212
  Serious: Yes (Hospitalization)
  Sender: FDA-Public Use
  Company Number: 20120303CINRY2707

PATIENT
  Age: 45 Year
  Sex: Female
  Weight: 85.6 kg

DRUGS (21)
  1. CINRYZE (C1 ESTERASE INHIBITOR (HUMAN) 500 UNIT, INJECTION FOR INFUSIOIN) (C1 ESTERASE INHIBITOR (HUMAN)) [Suspect]
     Indication: HEREDITARY ANGIOEDEMA
     Dosage: ( 1000 UNIT EVERY THREE TO FOUR DAYS), INTRAVENOUS?
     Route: 042
     Dates: start: 20111018
  2. CINRYZE (C1 ESTERASE INHIBITOR (HUMAN) 500 UNIT, INJECTION FOR INFUSIOIN) (C1 ESTERASE INHIBITOR (HUMAN)) [Suspect]
     Dosage: ( 1000 UNIT EVERY THREE TO FOUR DAYS), INTRAVENOUS?
     Route: 042
     Dates: start: 20111018
  3. AMLODIPINE (AMLODIPINE) [Concomitant]
  4. ALBUTEROL (SALBUTAMOL) [Concomitant]
  5. SYMBICORT (BUDESONIDE W/FORMOTEROL FUMARATE) [Concomitant]
  6. BENADRYL (DIPHENHYDRAMINE HYDROCHLORIDE) [Concomitant]
  7. DOXEPIN (DOXEPIN) [Concomitant]
  8. FAMOTIDINE (FAMOTIDINE) [Concomitant]
  9. GABAPENTIN (GABAPENTIN) [Concomitant]
  10. CYCLOSPORINE (CICLOSPORIN) [Concomitant]
  11. ADVAIR DISKUS [Concomitant]
  12. GLIMEPIRIDE (GLIMEPIRIDE) [Concomitant]
  13. HYDROCHLOROTHIAZIDE (HYDROCHLOROTHIAZIDE) [Concomitant]
  14. HYDROXYZINE (HYDROXYZINE) [Concomitant]
  15. NASONEX (MOMETASONE FUROATE) [Concomitant]
  16. IBUPROFEN (IBUPROFEN) [Concomitant]
  17. SINGULAIR (MONTELUKAST) 10MG [Concomitant]
  18. MS CONTIN (MORPHINE SULFATE) [Concomitant]
  19. POLYETHYLENE GLYCOL (MACROGOL) [Concomitant]
  20. ROXICODONE (OXYCODONE HYDROCHLORIDE) (TABLETS) [Concomitant]
  21. PERLOXX [Concomitant]

REACTIONS (2)
  - Hereditary angioedema [None]
  - Drug dose omission [None]
